FAERS Safety Report 8963722 (Version 1)
Quarter: 2012Q4

REPORT INFORMATION
  Report Type: Report from Study
  Country: BR (occurrence: BR)
  Receive Date: 20121213
  Receipt Date: 20121213
  Transmission Date: 20130627
  Serious: Yes (Other)
  Sender: FDA-Public Use
  Company Number: BR-ABBOTT-12P-020-1015792-00

PATIENT
  Age: 65 Year
  Sex: Female
  Weight: 55 kg

DRUGS (7)
  1. HUMIRA [Suspect]
     Indication: RHEUMATOID ARTHRITIS
     Route: 058
     Dates: start: 20121107, end: 20121129
  2. METICORTEN [Concomitant]
     Indication: PAIN
     Route: 048
  3. ARAVA [Concomitant]
     Indication: ARTHRITIS
     Route: 048
     Dates: start: 2010
  4. ANDOPRIL [Concomitant]
     Indication: HYPERTENSION
     Route: 048
     Dates: start: 2009
  5. METHOTREXATE [Concomitant]
     Indication: ARTHRITIS
     Route: 048
  6. RIZIDRONATO [Concomitant]
     Indication: OSTEOPOROSIS
     Route: 048
  7. FOLIC ACID [Concomitant]
     Indication: ARTHRITIS
     Route: 048

REACTIONS (3)
  - Furuncle [Recovered/Resolved]
  - Osteitis [Not Recovered/Not Resolved]
  - Wound haemorrhage [Unknown]
